FAERS Safety Report 8205081-5 (Version None)
Quarter: 2012Q1

REPORT INFORMATION
  Report Type: 
  Country: None (occurrence: None)
  Receive Date: 20120313
  Receipt Date: 20120312
  Transmission Date: 20120608
  Serious: No
  Sender: FDA-Public Use
  Company Number: US-PFIZER INC-2011122349

PATIENT
  Age: 34 Year
  Sex: Female

DRUGS (10)
  1. NAPROXEN (ALEVE) [Concomitant]
     Indication: MIGRAINE
  2. SKELAXIN [Suspect]
     Indication: INTERVERTEBRAL DISC DEGENERATION
     Dosage: UNK
     Dates: start: 20080101
  3. NAPROXEN (ALEVE) [Concomitant]
     Indication: HEADACHE
  4. DAYPRO [Suspect]
     Dosage: UNK
     Dates: start: 20080101
  5. ULTRAM [Concomitant]
     Dosage: UNK
     Dates: start: 20080101
  6. PERCOCET [Concomitant]
  7. EXCEDRIN [Concomitant]
     Indication: HEADACHE
  8. DEMEROL [Concomitant]
  9. TRAMADOL [Concomitant]
     Dosage: UNK
  10. EXCEDRIN [Concomitant]
     Indication: MIGRAINE

REACTIONS (4)
  - ACNE [None]
  - FAT TISSUE INCREASED [None]
  - ABDOMINAL DISCOMFORT [None]
  - ALOPECIA [None]
